FAERS Safety Report 5524557-2 (Version None)
Quarter: 2007Q4

REPORT INFORMATION
  Report Type: 
  Country: None (occurrence: None)
  Receive Date: 20071123
  Receipt Date: 20071114
  Transmission Date: 20080405
  Serious: Yes (Hospitalization)
  Sender: FDA-Public Use
  Company Number: JP-JNJFOC-20071107246

PATIENT
  Age: 67 Year

DRUGS (1)
  1. ITRIZOLE [Suspect]
     Indication: NAIL TINEA
     Route: 048

REACTIONS (2)
  - ERYTHEMA [None]
  - PYREXIA [None]
